FAERS Safety Report 4929885-7 (Version None)
Quarter: 2006Q1

REPORT INFORMATION
  Report Type: 
  Country: None (occurrence: None)
  Receive Date: 20060301
  Receipt Date: 20060216
  Transmission Date: 20060701
  Serious: Yes (Death)
  Sender: FDA-Public Use
  Company Number: US-MERCK-0602USA04652

PATIENT
  Sex: Male

DRUGS (1)
  1. VIOXX [Suspect]
     Route: 065
     Dates: start: 20001101, end: 20010201

REACTIONS (2)
  - CARDIAC ARREST [None]
  - UNEVALUABLE EVENT [None]
